FAERS Safety Report 8473906-4 (Version None)
Quarter: 2012Q2

REPORT INFORMATION
  Report Type: 
  Country: None (occurrence: None)
  Receive Date: 20120628
  Receipt Date: 20120229
  Transmission Date: 20120825
  Serious: Yes (Death)
  Sender: FDA-Public Use
  Company Number: US-MYLANLABS-2012S1001840

PATIENT
  Age: 45 Year
  Sex: Male

DRUGS (8)
  1. CLOZAPINE [Suspect]
     Route: 048
     Dates: start: 20060126
  2. HUMULIN INSULIN [Concomitant]
  3. GABAPENTIN [Concomitant]
  4. CLONAZEPAM [Concomitant]
  5. ATENOLOL [Concomitant]
  6. DOXEPIN [Concomitant]
  7. ADDERALL 5 [Concomitant]
  8. OMEPRAZOLE [Concomitant]

REACTIONS (1)
  - MYOCARDIAL INFARCTION [None]
